FAERS Safety Report 7922189-X (Version None)
Quarter: 2011Q4

REPORT INFORMATION
  Report Type: 
  Country: None (occurrence: None)
  Receive Date: 20111117
  Receipt Date: 20110128
  Transmission Date: 20120403
  Serious: No
  Sender: FDA-Public Use
  Company Number: US-AMGEN-USASP2010010621

PATIENT
  Age: 97 Year
  Sex: Female
  Weight: 49.887 kg

DRUGS (1)
  1. ENBREL [Suspect]
     Indication: RHEUMATOID ARTHRITIS
     Dosage: 50 MG, 2 TIMES/WK
     Route: 058
     Dates: start: 19990601

REACTIONS (7)
  - MUSCULAR WEAKNESS [None]
  - PAIN IN EXTREMITY [None]
  - HEAD INJURY [None]
  - ASTHENIA [None]
  - INAPPROPRIATE SCHEDULE OF DRUG ADMINISTRATION [None]
  - HYPERTENSION [None]
  - HEADACHE [None]
